FAERS Safety Report 7043347-5 (Version None)
Quarter: 2010Q4

REPORT INFORMATION
  Report Type: 
  Country: None (occurrence: None)
  Receive Date: 20101013
  Receipt Date: 20101008
  Transmission Date: 20110411
  Serious: Yes (Death, Hospitalization)
  Sender: FDA-Public Use
  Company Number: US-ACTELION-A-US2010-38065

PATIENT

DRUGS (15)
  1. VELETRI [Suspect]
     Indication: PULMONARY ARTERIAL HYPERTENSION
     Dosage: 16 NG/KG/MIN
     Route: 041
     Dates: start: 20100702, end: 20100703
  2. VELETRI [Suspect]
     Dosage: 1 NG/KG, PER MIN
     Route: 041
     Dates: start: 20100629
  3. VELETRI [Suspect]
     Dosage: 15 NG/KG, PER MIN
     Route: 041
     Dates: start: 20100703, end: 20100705
  4. VELETRI [Suspect]
     Dosage: 16NG/KG, PER MIN
     Route: 041
     Dates: start: 20100705, end: 20100706
  5. VELETRI [Suspect]
     Dosage: 18 NG/KG,PER MIN
     Route: 041
     Dates: start: 20100706, end: 20100713
  6. VELETRI [Suspect]
     Dosage: 17 NG/KG, PER MIN
     Route: 041
     Dates: start: 20100713, end: 20100714
  7. VELETRI [Suspect]
     Dosage: 15 NG/KG, PER MIN
     Route: 041
     Dates: start: 20100714, end: 20100715
  8. VELETRI [Suspect]
     Dosage: 7 NG/KG, PER MIN
     Route: 041
     Dates: start: 20100715, end: 20100715
  9. FLOLAN [Concomitant]
  10. FUROSEMIDE [Concomitant]
  11. DIGOXIN [Concomitant]
  12. WARFARIN SODIUM [Concomitant]
  13. PREDNISONE [Concomitant]
  14. ALBUTEROL [Concomitant]
  15. POTASSIUM [Concomitant]

REACTIONS (15)
  - COUGH [None]
  - DECREASED ACTIVITY [None]
  - DIARRHOEA [None]
  - DRUG INEFFECTIVE [None]
  - DYSPNOEA [None]
  - FEELING ABNORMAL [None]
  - FLUSHING [None]
  - HEADACHE [None]
  - HYPOXIA [None]
  - MALAISE [None]
  - MYALGIA [None]
  - NAUSEA [None]
  - OXYGEN SATURATION DECREASED [None]
  - PAIN IN JAW [None]
  - PULMONARY ARTERIAL HYPERTENSION [None]
